FAERS Safety Report 7043547-4 (Version None)
Quarter: 2010Q4

REPORT INFORMATION
  Report Type: 
  Country: None (occurrence: None)
  Receive Date: 20101013
  Receipt Date: 20101006
  Transmission Date: 20110411
  Serious: Yes (Hospitalization)
  Sender: FDA-Public Use
  Company Number: A0794767A

PATIENT
  Age: 46 Year
  Sex: Male

DRUGS (1)
  1. AVANDIA [Suspect]
     Indication: TYPE 2 DIABETES MELLITUS
     Dosage: 4MG TWICE PER DAY
     Route: 048
     Dates: start: 20040801, end: 20060801

REACTIONS (7)
  - BONE DISORDER [None]
  - CARDIAC DISORDER [None]
  - EYE DISORDER [None]
  - GAIT DISTURBANCE [None]
  - ISCHAEMIC STROKE [None]
  - MACULAR OEDEMA [None]
  - MEMORY IMPAIRMENT [None]
